FAERS Safety Report 17554301 (Version 2)
Quarter: 2020Q2

REPORT INFORMATION
  Report Type: Report from Study
  Country: None (occurrence: US)
  Receive Date: 20200318
  Receipt Date: 20200406
  Transmission Date: 20200713
  Serious: Yes (Other)
  Sender: FDA-Public Use
  Company Number: US-ABBVIE-19K-163-2872002-00

PATIENT
  Sex: Female

DRUGS (2)
  1. HUMIRA [Suspect]
     Active Substance: ADALIMUMAB
     Route: 058
     Dates: start: 202001
  2. HUMIRA [Suspect]
     Active Substance: ADALIMUMAB
     Indication: RHEUMATOID ARTHRITIS
     Route: 058
     Dates: start: 201905

REACTIONS (21)
  - Joint swelling [Recovering/Resolving]
  - Gallbladder disorder [Unknown]
  - Musculoskeletal stiffness [Unknown]
  - Back pain [Unknown]
  - Fatigue [Recovering/Resolving]
  - Gait disturbance [Unknown]
  - General physical health deterioration [Not Recovered/Not Resolved]
  - Fibromyalgia [Not Recovered/Not Resolved]
  - Headache [Not Recovered/Not Resolved]
  - Night sweats [Not Recovered/Not Resolved]
  - Emotional disorder [Not Recovered/Not Resolved]
  - Impaired self-care [Unknown]
  - Drug ineffective [Unknown]
  - Sciatica [Not Recovered/Not Resolved]
  - Peripheral swelling [Unknown]
  - Pain in extremity [Unknown]
  - Joint stiffness [Recovering/Resolving]
  - Arthralgia [Recovering/Resolving]
  - Loss of personal independence in daily activities [Unknown]
  - Medication error [Unknown]
  - Crying [Not Recovered/Not Resolved]

NARRATIVE: CASE EVENT DATE: 2019
